FAERS Safety Report 24578984 (Version 1)
Quarter: 2024Q4

REPORT INFORMATION
  Report Type: Spontaneous
  Country: CA (occurrence: CA)
  Receive Date: 20241105
  Receipt Date: 20241105
  Transmission Date: 20250114
  Serious: Yes (Other)
  Sender: ACCORD
  Company Number: None

PATIENT
  Age: 5 Year
  Sex: Male
  Weight: 16 kg

DRUGS (3)
  1. MONTELUKAST [Suspect]
     Active Substance: MONTELUKAST
     Indication: Asthma
     Dosage: 1 EVERY 1 DAYS
     Route: 048
  2. FLUTICASONE [Concomitant]
     Active Substance: FLUTICASONE
  3. ALBUTEROL [Concomitant]
     Active Substance: ALBUTEROL

REACTIONS (5)
  - Anger [Unknown]
  - Heart rate increased [Unknown]
  - Neuropsychological symptoms [Unknown]
  - Nightmare [Unknown]
  - Sleep talking [Unknown]
